FAERS Safety Report 7796147-2 (Version None)
Quarter: 2011Q4

REPORT INFORMATION
  Report Type: 
  Country: None (occurrence: None)
  Receive Date: 20111004
  Receipt Date: 20110927
  Transmission Date: 20120403
  Serious: Yes (Death, Other)
  Sender: FDA-Public Use
  Company Number: US-CELGENEUS-163-21880-11032515

PATIENT
  Sex: Female
  Weight: 70.37 kg

DRUGS (9)
  1. METFORMIN HCL [Concomitant]
     Route: 065
  2. PRESERVISION AREDS [Concomitant]
     Route: 065
  3. MAGNESIUM [Concomitant]
     Route: 065
  4. ATENOLOL [Concomitant]
     Route: 065
  5. LISINOPRIL [Concomitant]
     Route: 065
  6. ASPIRIN [Concomitant]
     Route: 065
  7. MULTI-VITAMINS [Concomitant]
     Route: 065
  8. REVLIMID [Suspect]
     Indication: MULTIPLE MYELOMA
     Dosage: 10 MILLIGRAM
     Route: 048
     Dates: start: 20100730, end: 20110315
  9. VITAMIN D [Concomitant]
     Route: 065

REACTIONS (3)
  - ACUTE MYOCARDIAL INFARCTION [None]
  - INFLUENZA [None]
  - RESPIRATORY FAILURE [None]
